FAERS Safety Report 16639575 (Version 1)
Quarter: 2019Q3

REPORT INFORMATION
  Report Type: Report from Study
  Country: GB (occurrence: GB)
  Receive Date: 20190726
  Receipt Date: 20190726
  Transmission Date: 20191004
  Serious: Yes (Death, Hospitalization)
  Sender: FDA-Public Use
  Company Number: PHHY2019GB171642

PATIENT
  Sex: Male
  Weight: 109 kg

DRUGS (1)
  1. COSENTYX [Suspect]
     Active Substance: SECUKINUMAB
     Indication: PSORIASIS
     Dosage: 300 MG, Q4W
     Route: 065
     Dates: start: 20170828, end: 20181214

REACTIONS (12)
  - Confusional state [Fatal]
  - Fall [Fatal]
  - Respiratory failure [Fatal]
  - Fungal infection [Fatal]
  - Abdominal distension [Fatal]
  - Hepatorenal syndrome [Fatal]
  - Multiple organ dysfunction syndrome [Fatal]
  - Hepatic artery stenosis [Fatal]
  - Pneumonia [Fatal]
  - Peritonitis bacterial [Fatal]
  - Alcoholic liver disease [Fatal]
  - Acute pulmonary oedema [Fatal]

NARRATIVE: CASE EVENT DATE: 201812
